FAERS Safety Report 24431315 (Version 1)
Quarter: 2024Q4

REPORT INFORMATION
  Report Type: Spontaneous
  Country: US (occurrence: US)
  Receive Date: 20241014
  Receipt Date: 20241014
  Transmission Date: 20250115
  Serious: Yes (Hospitalization, Other)
  Sender: AUROBINDO
  Company Number: US-AUROBINDO-AUR-APL-2024-048793

PATIENT
  Age: 51 Year
  Sex: Male

DRUGS (4)
  1. METHYLPREDNISOLONE [Suspect]
     Active Substance: METHYLPREDNISOLONE
     Indication: Toxic leukoencephalopathy
     Dosage: 1000 MILLIGRAM
     Route: 042
  2. VITAMIN C [Suspect]
     Active Substance: ASCORBIC ACID
     Indication: Toxic leukoencephalopathy
     Dosage: UNK
     Route: 048
  3. VITAMIN E [Suspect]
     Active Substance: .ALPHA.-TOCOPHEROL
     Indication: Toxic leukoencephalopathy
     Dosage: UNK
     Route: 048
  4. UBIDECARENONE [Suspect]
     Active Substance: UBIDECARENONE
     Indication: Toxic leukoencephalopathy
     Dosage: UNK
     Route: 048

REACTIONS (1)
  - Drug ineffective [Unknown]
